FAERS Safety Report 6028651-1 (Version None)
Quarter: 2009Q1

REPORT INFORMATION
  Report Type: 
  Country: None (occurrence: None)
  Receive Date: 20090105
  Receipt Date: 20090105
  Transmission Date: 20090719
  Serious: No
  Sender: FDA-Public Use
  Company Number: None

PATIENT
  Age: 84 Year
  Sex: Male
  Weight: 94.35 kg

DRUGS (1)
  1. LOVASTATIN [Suspect]
     Indication: HYPERLIPIDAEMIA
     Dosage: 40 MG PM PO
     Route: 048
     Dates: start: 20071103, end: 20081216

REACTIONS (1)
  - MYALGIA [None]
